FAERS Safety Report 21150678 (Version 2)
Quarter: 2023Q1

REPORT INFORMATION
  Report Type: Spontaneous
  Country: US (occurrence: US)
  Receive Date: 20220729
  Receipt Date: 20230123
  Transmission Date: 20230418
  Serious: No
  Sender: FDA-Public Use
  Company Number: US-NOVOPROD-937650

PATIENT
  Age: 75 Year
  Sex: Female

DRUGS (2)
  1. OZEMPIC [Suspect]
     Active Substance: SEMAGLUTIDE
     Indication: Glucose tolerance impaired
     Dosage: 1.0 MG
     Dates: start: 2022
  2. OZEMPIC [Suspect]
     Active Substance: SEMAGLUTIDE
     Indication: Metabolic syndrome
     Dosage: 0.5MG
     Route: 058
     Dates: start: 20220322, end: 2022

REACTIONS (6)
  - Weight loss poor [Unknown]
  - Feeling abnormal [Unknown]
  - Flatulence [Recovering/Resolving]
  - Nausea [Recovering/Resolving]
  - Rash [Unknown]
  - Product prescribing issue [Not Recovered/Not Resolved]

NARRATIVE: CASE EVENT DATE: 20220322
